FAERS Safety Report 18469382 (Version 1)
Quarter: 2020Q4

REPORT INFORMATION
  Report Type: Spontaneous
  Country: CA (occurrence: CA)
  Receive Date: 20201105
  Receipt Date: 20201105
  Transmission Date: 20210114
  Serious: Yes (Other)
  Sender: FDA-Public Use
  Company Number: CA-PFIZER INC-2020428811

PATIENT
  Age: 75 Year
  Sex: Female

DRUGS (3)
  1. SULFASALAZINE. [Concomitant]
     Active Substance: SULFASALAZINE
     Dosage: 1000MG, 2X/DAY
     Route: 048
  2. PLAQUENIL S [Concomitant]
     Active Substance: HYDROXYCHLOROQUINE SULFATE
     Dosage: 200MG/400MG, DAILY
  3. RITUXIMAB. [Suspect]
     Active Substance: RITUXIMAB
     Indication: RHEUMATOID ARTHRITIS
     Dosage: 1000 MG AT 0 AND 2 WEEKS, 24 WEEKS BETWEEN COURSES
     Route: 042
     Dates: start: 2020

REACTIONS (2)
  - Therapeutic product effect incomplete [Unknown]
  - COVID-19 [Unknown]
